FAERS Safety Report 16006830 (Version 1)
Quarter: 2019Q1

REPORT INFORMATION
  Report Type: Report from Study
  Country: BE (occurrence: BE)
  Receive Date: 20190226
  Receipt Date: 20190226
  Transmission Date: 20190418
  Serious: Yes (Hospitalization, Disabling)
  Sender: FDA-Public Use
  Company Number: BE-REGENERON PHARMACEUTICALS, INC.-2019-15980

PATIENT

DRUGS (15)
  1. CEMIPLIMAB [Suspect]
     Active Substance: CEMIPLIMAB
     Indication: METASTATIC NEOPLASM
     Dosage: UNK
  2. CALCIUM [Concomitant]
     Active Substance: CALCIUM
     Indication: TRANSPLANT
     Dosage: 1 G, 1X
     Route: 048
  3. MEDROL [Concomitant]
     Active Substance: METHYLPREDNISOLONE
     Indication: TRANSPLANT
     Dosage: 8 MG, 1X
     Route: 048
  4. MAGNETOP                           /00434501/ [Concomitant]
     Indication: TRANSPLANT
     Dosage: 1 BAG, 1X
     Route: 048
  5. DAFALGAN [Concomitant]
     Active Substance: ACETAMINOPHEN
     Indication: PAIN
     Dosage: 1 G, 1X
     Route: 048
  6. ALLOPURINOL. [Concomitant]
     Active Substance: ALLOPURINOL
     Indication: TRANSPLANT
     Dosage: 150 MG, 1X
     Route: 048
  7. VITAMIN D                          /00107901/ [Concomitant]
     Active Substance: ERGOCALCIFEROL
     Indication: TRANSPLANT
     Dosage: 25000 U, 1X/WEEK
     Route: 048
  8. OXYCONTIN [Concomitant]
     Active Substance: OXYCODONE HYDROCHLORIDE
     Indication: PAIN
     Dosage: 10 MG, 2X/D
     Route: 048
     Dates: start: 20190121
  9. INNOHEP [Concomitant]
     Active Substance: TINZAPARIN SODIUM
     Indication: ANTICOAGULANT THERAPY
     Dosage: 9000 U, 1X
     Route: 058
     Dates: start: 20190124
  10. SELOZOK [Concomitant]
     Active Substance: METOPROLOL SUCCINATE
     Indication: HYPERTENSION
     Dosage: 180 MG, 1X
     Route: 048
     Dates: start: 20190102
  11. FOLAVIT [Concomitant]
     Active Substance: FOLIC ACID
     Indication: VITAMIN SUPPLEMENTATION
     Dosage: 4 MG, 1X
     Route: 048
  12. TERAZOSINE                         /00685101/ [Concomitant]
     Indication: PROSTATISM
     Dosage: 2 MG, 1X
     Route: 048
  13. CEMIPLIMAB [Suspect]
     Active Substance: CEMIPLIMAB
     Indication: RENAL TRANSPLANT
     Dosage: 3 MG/KG, QOW
     Route: 042
     Dates: start: 20190114
  14. PANTOMED                           /01263204/ [Concomitant]
     Active Substance: PANTOPRAZOLE SODIUM
     Dosage: 20 MG, 1X
     Route: 048
  15. AMLOR [Concomitant]
     Active Substance: AMLODIPINE BESYLATE
     Indication: HYPERTENSION
     Dosage: 10 MG, 1X
     Route: 048
     Dates: start: 20190102

REACTIONS (1)
  - Thrombosis [Recovering/Resolving]

NARRATIVE: CASE EVENT DATE: 20190124
